FAERS Safety Report 8323293-7 (Version None)
Quarter: 2012Q2

REPORT INFORMATION
  Report Type: 
  Country: None (occurrence: None)
  Receive Date: 20120430
  Receipt Date: 20120419
  Transmission Date: 20120825
  Serious: Yes (Death, Hospitalization)
  Sender: FDA-Public Use
  Company Number: US-BAXTER-2012BAX000862

PATIENT
  Sex: Female

DRUGS (2)
  1. DIANEAL [Suspect]
     Route: 033
     Dates: start: 20070319, end: 20120411
  2. DIANEAL [Suspect]
     Route: 033
     Dates: start: 20070319, end: 20120411

REACTIONS (4)
  - PNEUMONIA [None]
  - CORONARY ARTERY DISEASE [None]
  - AORTIC STENOSIS [None]
  - ATRIAL FIBRILLATION [None]
